FAERS Safety Report 6081409-X (Version None)
Quarter: 2009Q1

REPORT INFORMATION
  Report Type: 
  Country: None (occurrence: None)
  Receive Date: 20090213
  Receipt Date: 20090204
  Transmission Date: 20090719
  Serious: Yes (Hospitalization)
  Sender: FDA-Public Use
  Company Number: 2009SP002634

PATIENT
  Age: 46 Year
  Sex: Male
  Weight: 68 kg

DRUGS (7)
  1. PEG-INTRON [Suspect]
     Indication: HEPATITIS C
     Dosage: 120 MCG; QW;
     Dates: start: 20081205
  2. RIBAVIRIN [Suspect]
     Indication: HEPATITIS C
     Dosage: 1000 MCG; QD;
     Dates: start: 20081205
  3. RIBAVIRIN [Suspect]
  4. BLINDED SCH 503034  (HCV PROTEASE INHIBITOR) [Suspect]
     Indication: HEPATITIS C
     Dosage: 2400 MCG; QD;
     Dates: start: 20090102
  5. BLINDED SCH 503034 (HCV PROTEASE INHIBITOR) [Suspect]
  6. FOLIC ACID [Suspect]
  7. FLUOXETINE HCL [Suspect]

REACTIONS (4)
  - ABSCESS LIMB [None]
  - ERECTILE DYSFUNCTION [None]
  - PAIN IN EXTREMITY [None]
  - PYREXIA [None]
